FAERS Safety Report 5157646-5 (Version None)
Quarter: 2006Q4

REPORT INFORMATION
  Report Type: 
  Country: None (occurrence: None)
  Receive Date: 20061127
  Receipt Date: 20050714
  Transmission Date: 20070319
  Serious: Yes (Other)
  Sender: FDA-Public Use
  Company Number: US-ROCHE-410914

PATIENT
  Age: 51 Year
  Sex: Male
  Weight: 95.3 kg

DRUGS (13)
  1. VALIUM [Suspect]
     Indication: DRUG USE FOR UNKNOWN INDICATION
     Dosage: REPORTED AS WHEN REQUIRED
     Route: 048
  2. CONDYLOX [Suspect]
     Dosage: SMALL AMOUNT/DAB ON AREA.
     Route: 002
     Dates: start: 20050425, end: 20050425
  3. FLEXERIL [Suspect]
     Indication: DRUG USE FOR UNKNOWN INDICATION
     Dosage: TAKEN WHEN REQUIRED
     Route: 048
  4. FENTANYL [Suspect]
     Indication: ANALGESIC EFFECT
     Route: 062
  5. PODOFILOX [Suspect]
     Dosage: DOSE REPORTED AS SWAB
     Route: 002
     Dates: start: 20050415, end: 20050515
  6. ACE INHIBITOR [Concomitant]
  7. ZIAC [Concomitant]
  8. WELLBUTRIN [Concomitant]
  9. PERCOCET [Concomitant]
  10. PROZAC [Concomitant]
  11. LIPITOR [Concomitant]
  12. ZESTRIL [Concomitant]
  13. TRAZODONE HCL [Concomitant]

REACTIONS (10)
  - ABNORMAL BEHAVIOUR [None]
  - COORDINATION ABNORMAL [None]
  - DRUG TOXICITY [None]
  - DYSARTHRIA [None]
  - HEPATIC MASS [None]
  - MENTAL STATUS CHANGES [None]
  - PULMONARY MASS [None]
  - RENAL CYST [None]
  - RENAL FAILURE [None]
  - RENAL MASS [None]
